FAERS Safety Report 10066190 (Version 1)
Quarter: 2014Q2

REPORT INFORMATION
  Report Type: Spontaneous
  Country: IT (occurrence: IT)
  Receive Date: 20140408
  Receipt Date: 20140408
  Transmission Date: 20141212
  Serious: Yes (Hospitalization)
  Sender: FDA-Public Use
  Company Number: IT-ASTRAZENECA-2014SE22696

PATIENT
  Age: 13216 Day
  Sex: Male

DRUGS (4)
  1. SEROQUEL PROLONG [Suspect]
     Route: 048
     Dates: start: 20140308, end: 20140308
  2. FELISON [Suspect]
     Route: 048
     Dates: start: 20140308, end: 20140308
  3. FELISON [Suspect]
     Route: 048
     Dates: start: 20140308, end: 20140308
  4. TRITTICO [Suspect]
     Route: 048
     Dates: start: 20140308, end: 20140308

REACTIONS (3)
  - Intentional overdose [Unknown]
  - Sopor [Recovered/Resolved]
  - Toxicity to various agents [Unknown]
